FAERS Safety Report 4711905-6 (Version None)
Quarter: 2005Q2

REPORT INFORMATION
  Report Type: 
  Country: None (occurrence: None)
  Receive Date: 20050629
  Receipt Date: 20050509
  Transmission Date: 20051028
  Serious: No
  Sender: FDA-Public Use
  Company Number: 05P-163-0300051-00

PATIENT
  Age: 65 Year
  Sex: Female
  Weight: 72.5755 kg

DRUGS (7)
  1. HUMIRA [Suspect]
     Indication: RHEUMATOID ARTHRITIS
     Dosage: 40 MG, 1 IN 2 WK, SUBCUTANEOUS
     Route: 058
     Dates: start: 20041101
  2. METHOTREXATE [Concomitant]
  3. ATORVASTATIN CALCIUM [Concomitant]
  4. VERAPAMIL [Concomitant]
  5. HYDROCHLOROTHIAZIDE [Concomitant]
  6. VITAMINS [Concomitant]
  7. FOLIC ACID [Concomitant]

REACTIONS (1)
  - NASOPHARYNGITIS [None]
